FAERS Safety Report 10611921 (Version 3)
Quarter: 2014Q4

REPORT INFORMATION
  Report Type: Report from Study
  Country: US (occurrence: US)
  Receive Date: 20141126
  Receipt Date: 20141224
  Transmission Date: 20150529
  Serious: Yes (Death, Hospitalization, Other)
  Sender: FDA-Public Use
  Company Number: US-JNJFOC-20141008360

PATIENT
  Age: 64 Year
  Sex: Male
  Weight: 75 kg

DRUGS (9)
  1. FUROSEMIDE. [Concomitant]
     Active Substance: FUROSEMIDE
  2. LEVOTHYROXINE [Concomitant]
     Active Substance: LEVOTHYROXINE
  3. MULTIVITAMINS [Concomitant]
     Active Substance: VITAMINS
  4. IMBRUVICA [Suspect]
     Active Substance: IBRUTINIB
     Indication: MANTLE CELL LYMPHOMA
     Route: 048
     Dates: start: 20140829, end: 20141025
  5. DOCUSATE [Concomitant]
     Active Substance: DOCUSATE
  6. BACTRIM [Concomitant]
     Active Substance: SULFAMETHOXAZOLE\TRIMETHOPRIM
  7. LIPITOR [Concomitant]
     Active Substance: ATORVASTATIN CALCIUM
  8. ACYCLOVIR. [Concomitant]
     Active Substance: ACYCLOVIR
     Route: 048
  9. KCL [Concomitant]
     Active Substance: POTASSIUM CHLORIDE

REACTIONS (10)
  - Hyperkalaemia [Not Recovered/Not Resolved]
  - Diarrhoea [Unknown]
  - Urinary tract infection [Not Recovered/Not Resolved]
  - Thrombocytopenia [Unknown]
  - Acute kidney injury [Not Recovered/Not Resolved]
  - Decreased appetite [Unknown]
  - Disease progression [Fatal]
  - Fatigue [Unknown]
  - Failure to thrive [Unknown]
  - Ascites [Not Recovered/Not Resolved]

NARRATIVE: CASE EVENT DATE: 2014
